FAERS Safety Report 8074611-9 (Version None)
Quarter: 2012Q1

REPORT INFORMATION
  Report Type: 
  Country: None (occurrence: None)
  Receive Date: 20120126
  Receipt Date: 20120116
  Transmission Date: 20120608
  Serious: Yes (Disabling, Other)
  Sender: FDA-Public Use
  Company Number: JP-CELGENEUS-087-21880-11112820

PATIENT
  Sex: Male

DRUGS (39)
  1. REVLIMID [Suspect]
     Dosage: 15 MILLIGRAM
     Route: 048
     Dates: start: 20110812, end: 20110817
  2. MAGMITT [Concomitant]
     Indication: ILL-DEFINED DISORDER
     Dosage: 1980 MILLIGRAM
     Route: 048
     Dates: start: 20090801, end: 20110615
  3. SODIUM BICARBONATE [Concomitant]
     Indication: PROPHYLAXIS
     Dosage: 40 MILLILITER
     Route: 041
     Dates: start: 20110512, end: 20110519
  4. ACETAMINOPHEN [Concomitant]
     Indication: ILL-DEFINED DISORDER
     Dosage: .5 GRAM
     Route: 048
     Dates: start: 20110811, end: 20110818
  5. EPOGIN [Concomitant]
     Indication: ILL-DEFINED DISORDER
     Dosage: 12000 IU (INTERNATIONAL UNIT)
     Route: 058
     Dates: start: 20110714, end: 20110714
  6. DEXAMETHASONE ACETATE [Suspect]
     Dosage: 24 MILLIGRAM
     Route: 048
     Dates: start: 20110625, end: 20110628
  7. DEXAMETHASONE ACETATE [Suspect]
     Dosage: 24 MILLIGRAM
     Route: 048
     Dates: start: 20110703, end: 20110706
  8. DEXAMETHASONE ACETATE [Suspect]
     Dosage: 24 MILLIGRAM
     Route: 048
     Dates: start: 20110812, end: 20110815
  9. PURSENNID [Concomitant]
     Indication: ILL-DEFINED DISORDER
     Dosage: 24 MILLIGRAM
     Route: 048
     Dates: start: 20110617, end: 20110818
  10. DEXAMETHASONE ACETATE [Suspect]
     Indication: MULTIPLE MYELOMA
     Dosage: 24 MILLIGRAM
     Route: 048
     Dates: start: 20110519, end: 20110522
  11. DEXAMETHASONE ACETATE [Suspect]
     Dosage: 24 MILLIGRAM
     Route: 048
     Dates: start: 20110604, end: 20110607
  12. NEUFAN [Concomitant]
     Indication: PROPHYLAXIS
     Dosage: 100 MILLIGRAM
     Route: 048
     Dates: start: 20110617, end: 20110818
  13. MAGMITT [Concomitant]
     Dosage: 1980 MILLIGRAM
     Route: 048
     Dates: start: 20110617, end: 20110818
  14. MOHRUS TAPE [Concomitant]
     Dosage: 20 MILLIGRAM
     Route: 062
     Dates: start: 20110617, end: 20110818
  15. SOLITA-T NO.1 [Concomitant]
     Indication: ILL-DEFINED DISORDER
     Dosage: 1000 MILLILITER
     Route: 041
     Dates: start: 20110512, end: 20110519
  16. LACTEC [Concomitant]
     Dosage: 1000 MILLILITER
     Route: 041
     Dates: start: 20110805, end: 20110817
  17. REVLIMID [Suspect]
     Dosage: 15 MILLIGRAM
     Route: 048
     Dates: start: 20110715, end: 20110804
  18. DEXAMETHASONE ACETATE [Suspect]
     Dosage: 24 MILLIGRAM
     Route: 048
     Dates: start: 20110527, end: 20110530
  19. DEXAMETHASONE ACETATE [Suspect]
     Dosage: 24 MILLIGRAM
     Route: 048
     Dates: start: 20110617, end: 20110620
  20. DEXAMETHASONE ACETATE [Suspect]
     Dosage: 24 MILLIGRAM
     Route: 048
     Dates: start: 20110731, end: 20110803
  21. LANSOPRAZOLE [Concomitant]
     Indication: PROPHYLAXIS
     Dosage: 15 MILLIGRAM
     Route: 048
     Dates: start: 20090801, end: 20110615
  22. MOHRUS TAPE [Concomitant]
     Indication: ILL-DEFINED DISORDER
     Dosage: 20 MILLIGRAM
     Route: 062
     Dates: start: 20090801, end: 20110615
  23. SOLITA-T NO.1 [Concomitant]
     Dosage: 1500 MILLILITER
     Route: 041
     Dates: start: 20110710, end: 20110719
  24. LACTEC [Concomitant]
     Indication: ILL-DEFINED DISORDER
     Dosage: 500 MILLILITER
     Route: 041
     Dates: start: 20110710, end: 20110710
  25. REVLIMID [Suspect]
     Indication: MULTIPLE MYELOMA
     Dosage: 15 MILLIGRAM
     Route: 048
     Dates: start: 20110519, end: 20110608
  26. DEXAMETHASONE ACETATE [Suspect]
     Dosage: 24 MILLIGRAM
     Route: 048
     Dates: start: 20110723, end: 20110726
  27. LANSOPRAZOLE [Concomitant]
     Dosage: 15 MILLIGRAM
     Route: 048
     Dates: start: 20110617, end: 20110818
  28. ITRACONAZOLE [Concomitant]
     Dosage: 50 MILLIGRAM
     Route: 048
     Dates: start: 20110617, end: 20110818
  29. BACTRIM [Concomitant]
     Indication: PROPHYLAXIS
     Dosage: 1 TABLET
     Route: 048
     Dates: start: 20090801, end: 20110615
  30. SOLITA-T NO.1 [Concomitant]
     Dosage: 1500 MILLILITER
     Route: 041
     Dates: start: 20110630, end: 20110704
  31. LAXOBERON [Concomitant]
     Indication: ILL-DEFINED DISORDER
     Dosage: 15 DROPS
     Route: 048
     Dates: start: 20110716, end: 20110818
  32. GLYCERIN [Concomitant]
     Indication: ILL-DEFINED DISORDER
     Dosage: 60 MILLILITER
     Route: 054
     Dates: start: 20110804, end: 20110808
  33. SOLITA-T3 [Concomitant]
     Indication: ILL-DEFINED DISORDER
     Dosage: 1500 MILLILITER
     Route: 041
     Dates: start: 20110728, end: 20110804
  34. REVLIMID [Suspect]
     Dosage: 15 MILLIGRAM
     Route: 048
     Dates: start: 20110617, end: 20110707
  35. ITRACONAZOLE [Concomitant]
     Indication: PROPHYLAXIS
     Dosage: 50 MILLIGRAM
     Route: 048
     Dates: start: 20090801, end: 20110615
  36. NEUFAN [Concomitant]
     Indication: ILL-DEFINED DISORDER
     Dosage: 100 MILLIGRAM
     Route: 048
     Dates: start: 20090801, end: 20110615
  37. BACTRIM [Concomitant]
     Dosage: 1 TABLET
     Route: 048
     Dates: start: 20110617, end: 20110818
  38. FENTOS TAPE [Concomitant]
     Indication: ILL-DEFINED DISORDER
     Dosage: 1 MILLIGRAM
     Route: 062
     Dates: start: 20110812, end: 20110821
  39. DEXAMETHASONE ACETATE [Suspect]
     Dosage: 24 MILLIGRAM
     Route: 048
     Dates: start: 20110715, end: 20110718

REACTIONS (12)
  - THROMBOCYTOPENIA [None]
  - ATRIAL FIBRILLATION [None]
  - WEIGHT DECREASED [None]
  - RESTLESSNESS [None]
  - HEPATIC FUNCTION ABNORMAL [None]
  - DIARRHOEA [None]
  - HYPOXIA [None]
  - GENERAL PHYSICAL HEALTH DETERIORATION [None]
  - ANAEMIA [None]
  - DIABETES MELLITUS [None]
  - MELAENA [None]
  - DEHYDRATION [None]
